FAERS Safety Report 5535455-2 (Version None)
Quarter: 2007Q4

REPORT INFORMATION
  Report Type: 
  Country: None (occurrence: None)
  Receive Date: 20071120
  Receipt Date: 20070815
  Transmission Date: 20080405
  Serious: No
  Sender: FDA-Public Use
  Company Number: WAES 0708USA02822

PATIENT
  Age: 76 Year
  Sex: Male

DRUGS (5)
  1. JANUVIA [Suspect]
     Indication: TYPE 2 DIABETES MELLITUS
     Dosage: 100 MG DAILY PO
     Route: 048
     Dates: start: 20070802, end: 20070816
  2. VYTORIN [Concomitant]
  3. GLIPIZIDE [Concomitant]
  4. LISINOPRIL [Concomitant]
  5. METFORMIN HCL [Concomitant]

REACTIONS (5)
  - DIPLOPIA [None]
  - EYE SWELLING [None]
  - HEADACHE [None]
  - OEDEMA [None]
  - SINUSITIS [None]
